FAERS Safety Report 8285600-3 (Version None)
Quarter: 2012Q2

REPORT INFORMATION
  Report Type: 
  Country: None (occurrence: None)
  Receive Date: 20120413
  Receipt Date: 20120214
  Transmission Date: 20120825
  Serious: No
  Sender: FDA-Public Use
  Company Number: US-ASTRAZENECA-2012SE10539

PATIENT
  Age: 58 Year
  Sex: Male

DRUGS (7)
  1. LISINOPRIL [Suspect]
     Route: 048
  2. CHANTIX [Concomitant]
  3. RANITIDINE [Concomitant]
  4. NAPROXEN [Concomitant]
  5. NEXIUM [Suspect]
     Route: 048
  6. LEVIMIR [Concomitant]
  7. NOVOLOG [Concomitant]

REACTIONS (3)
  - DRUG DOSE OMISSION [None]
  - ADVERSE EVENT [None]
  - IMPAIRED WORK ABILITY [None]
